FAERS Safety Report 19742826 (Version 7)
Quarter: 2023Q2

REPORT INFORMATION
  Report Type: Report from Study
  Country: CA (occurrence: CA)
  Receive Date: 20210825
  Receipt Date: 20230426
  Transmission Date: 20230722
  Serious: Yes (Other)
  Sender: FDA-Public Use
  Company Number: CA-NOVARTISPH-NVSC2020CA206931

PATIENT
  Age: 60 Year
  Sex: Female

DRUGS (1)
  1. MAYZENT [Suspect]
     Active Substance: SIPONIMOD
     Indication: Secondary progressive multiple sclerosis
     Dosage: UNK
     Route: 048
     Dates: start: 20200717

REACTIONS (21)
  - Hip fracture [Unknown]
  - Visual impairment [Not Recovered/Not Resolved]
  - Ocular discomfort [Unknown]
  - Eye pain [Recovering/Resolving]
  - Stress [Recovering/Resolving]
  - Pain [Unknown]
  - Fall [Unknown]
  - Electric shock sensation [Unknown]
  - Acrochordon [Unknown]
  - Arthralgia [Unknown]
  - Dysstasia [Unknown]
  - Joint stiffness [Unknown]
  - Balance disorder [Unknown]
  - Vertigo [Unknown]
  - Arthropathy [Unknown]
  - Fatigue [Not Recovered/Not Resolved]
  - Vision blurred [Unknown]
  - Abdominal discomfort [Unknown]
  - Pain in extremity [Unknown]
  - Dizziness [Unknown]
  - Inappropriate schedule of product administration [Unknown]

NARRATIVE: CASE EVENT DATE: 20200721
